FAERS Safety Report 22303512 (Version 2)
Quarter: 2023Q2

REPORT INFORMATION
  Report Type: Spontaneous
  Country: FR (occurrence: FR)
  Receive Date: 20230510
  Receipt Date: 20230516
  Transmission Date: 20230722
  Serious: Yes (Other)
  Sender: FDA-Public Use
  Company Number: FR-PFIZER INC-PV202300079529

PATIENT
  Age: 11 Year
  Sex: Male

DRUGS (4)
  1. METHOTREXATE SODIUM [Suspect]
     Active Substance: METHOTREXATE SODIUM
     Indication: Hepatosplenic T-cell lymphoma
     Dosage: UNK (TWO COURSES)
  2. CYTARABINE [Suspect]
     Active Substance: CYTARABINE
     Indication: Hepatosplenic T-cell lymphoma
     Dosage: UNK (TWO COURSES)
  3. IFOSFAMIDE [Suspect]
     Active Substance: IFOSFAMIDE
     Indication: Hepatosplenic T-cell lymphoma
     Dosage: UNK (TWO COURSES)
  4. ETOPOSIDE [Suspect]
     Active Substance: ETOPOSIDE
     Indication: Hepatosplenic T-cell lymphoma
     Dosage: UNK (TWO COURSES)

REACTIONS (1)
  - Encephalopathy [Unknown]
